FAERS Safety Report 25968454 (Version 2)
Quarter: 2025Q4

REPORT INFORMATION
  Report Type: Spontaneous
  Country: EU (occurrence: EU)
  Receive Date: 20251028
  Receipt Date: 20251107
  Transmission Date: 20260117
  Serious: No
  Sender: REGENERON
  Company Number: EU-BAYER-2025A141631

PATIENT
  Age: 76 Year
  Sex: Female

DRUGS (3)
  1. EYLEA HD [Suspect]
     Active Substance: AFLIBERCEPT
     Indication: Retinal vein occlusion
     Dosage: UNK, 114.3 MG/ML
     Route: 031
  2. APRACLONIDINE [Concomitant]
     Active Substance: APRACLONIDINE HYDROCHLORIDE
     Indication: Product used for unknown indication
     Dosage: UNK, EVERY 10 WEEKS
  3. UNSPECIFIED INGREDIENT [Concomitant]
     Active Substance: UNSPECIFIED INGREDIENT
     Indication: Product used for unknown indication
     Dosage: UNK, EVERY 10 WEEKS

REACTIONS (2)
  - Product prescribing issue [Unknown]
  - Product use in unapproved indication [Unknown]
